FAERS Safety Report 24663801 (Version 2)
Quarter: 2024Q4

REPORT INFORMATION
  Report Type: Spontaneous
  Country: DE (occurrence: DE)
  Receive Date: 20241126
  Receipt Date: 20241128
  Transmission Date: 20250115
  Serious: Yes (Hospitalization)
  Sender: NOVARTIS
  Company Number: DE-002147023-NVSC2024DE224747

PATIENT
  Age: 65 Year
  Sex: Female

DRUGS (1)
  1. MAYZENT [Suspect]
     Active Substance: SIPONIMOD
     Indication: Secondary progressive multiple sclerosis
     Dosage: 2 MG
     Route: 065
     Dates: start: 20240806, end: 20241029

REACTIONS (6)
  - Disease progression [Recovering/Resolving]
  - Secondary progressive multiple sclerosis [Recovering/Resolving]
  - Headache [Recovering/Resolving]
  - Disorientation [Recovering/Resolving]
  - White blood cell count increased [Recovering/Resolving]
  - Blood sodium decreased [Recovering/Resolving]

NARRATIVE: CASE EVENT DATE: 20241028
